FAERS Safety Report 8481908-7 (Version None)
Quarter: 2012Q2

REPORT INFORMATION
  Report Type: 
  Country: None (occurrence: None)
  Receive Date: 20120626
  Receipt Date: 20120626
  Transmission Date: 20120825
  Serious: No
  Sender: FDA-Public Use
  Company Number: None

PATIENT
  Sex: Male

DRUGS (1)
  1. HALOPERIDOL [Suspect]
     Indication: MENTAL DISORDER
     Dosage: 2 MG ONCE A DAY PO    ONE TIME
     Route: 048
     Dates: start: 20120620

REACTIONS (15)
  - DYSPNOEA [None]
  - THROAT TIGHTNESS [None]
  - DYSKINESIA [None]
  - THIRST [None]
  - LOSS OF CONSCIOUSNESS [None]
  - VOMITING [None]
  - NASAL CONGESTION [None]
  - PROTRUSION TONGUE [None]
  - VISUAL IMPAIRMENT [None]
  - DIARRHOEA [None]
  - CONSTIPATION [None]
  - MUSCULOSKELETAL STIFFNESS [None]
  - RASH [None]
  - HYPERHIDROSIS [None]
  - RESPIRATORY RATE DECREASED [None]
